FAERS Safety Report 7758603-2 (Version None)
Quarter: 2011Q3

REPORT INFORMATION
  Report Type: 
  Country: None (occurrence: None)
  Receive Date: 20110914
  Receipt Date: 20110908
  Transmission Date: 20111222
  Serious: Yes (Other)
  Sender: FDA-Public Use
  Company Number: 2011SP040437

PATIENT
  Age: 53 Year
  Sex: Male

DRUGS (11)
  1. REMERON [Suspect]
     Indication: DEPRESSION
     Dosage: 15 MG; ; PO 7.5 MG; ; PO
     Route: 048
     Dates: start: 20110401
  2. KAKKON-TO [Concomitant]
  3. DORAL [Concomitant]
  4. PHENOBARBITAL TAB [Concomitant]
  5. (CHLORPROMAZINE /PROMETHAZINE COMBINED DRU) [Concomitant]
  6. EURODIN [Concomitant]
  7. CHLORPROMAZINE HCL [Concomitant]
  8. LITHIUM CARBONATE [Concomitant]
  9. DOGMATYL [Concomitant]
  10. SENIRAN [Concomitant]
  11. KAMI-SHOYO-SAN [Concomitant]

REACTIONS (2)
  - LOSS OF CONSCIOUSNESS [None]
  - DEPRESSED LEVEL OF CONSCIOUSNESS [None]
